FAERS Safety Report 15344947 (Version 2)
Quarter: 2018Q3

REPORT INFORMATION
  Report Type: Spontaneous
  Country: US (occurrence: US)
  Receive Date: 20180903
  Receipt Date: 20180920
  Transmission Date: 20181010
  Serious: No
  Sender: FDA-Public Use
  Company Number: US-PFIZER INC-2018350422

PATIENT
  Age: 65 Year
  Sex: Female

DRUGS (1)
  1. EUCRISA [Suspect]
     Active Substance: CRISABOROLE
     Dosage: 2X/DAY [APPLY TO AFFECTED AREA(S)]
     Route: 061
     Dates: start: 201804, end: 2018

REACTIONS (2)
  - Application site discharge [Unknown]
  - Application site pain [Unknown]

NARRATIVE: CASE EVENT DATE: 2018
